FAERS Safety Report 6203983-2 (Version None)
Quarter: 2009Q2

REPORT INFORMATION
  Report Type: 
  Country: None (occurrence: None)
  Receive Date: 20090527
  Receipt Date: 20090519
  Transmission Date: 20091009
  Serious: Yes (Death)
  Sender: FDA-Public Use
  Company Number: B0575759A

PATIENT
  Sex: Female

DRUGS (7)
  1. AUGMENTIN '125' [Suspect]
     Dosage: 3G PER DAY
     Route: 048
     Dates: start: 20090421, end: 20090502
  2. LANOXIN [Concomitant]
  3. TAREG [Concomitant]
  4. LASIX [Concomitant]
  5. URBASON [Concomitant]
  6. ASPIRIN [Concomitant]
  7. CLEXANE [Concomitant]

REACTIONS (6)
  - BACTERIA STOOL IDENTIFIED [None]
  - DEHYDRATION [None]
  - DIARRHOEA [None]
  - HYPOKALAEMIA [None]
  - HYPOTENSION [None]
  - SHOCK [None]
